FAERS Safety Report 11660673 (Version 2)
Quarter: 2015Q4

REPORT INFORMATION
  Report Type: Spontaneous
  Country: US (occurrence: US)
  Receive Date: 20151026
  Receipt Date: 20151104
  Transmission Date: 20160304
  Serious: Yes (Disabling, Other)
  Sender: FDA-Public Use
  Company Number: US-GE HEALTHCARE MEDICAL DIAGNOSTICS-OSCN-PR-1510L-0187

PATIENT
  Age: 59 Year
  Sex: Male

DRUGS (2)
  1. GADOLINIUM (UNSPECIFIED) [Suspect]
     Active Substance: GADOLINIUM
     Indication: CRANIOTOMY
     Route: 037
  2. GADOLINIUM (UNSPECIFIED) [Suspect]
     Active Substance: GADOLINIUM
     Indication: DIAGNOSTIC PROCEDURE

REACTIONS (17)
  - VIIth nerve paralysis [Unknown]
  - Status epilepticus [Unknown]
  - Anxiety [Unknown]
  - Nausea [Unknown]
  - Confusional state [Unknown]
  - Scan abnormal [Unknown]
  - Nutritional supplementation [Unknown]
  - Brain oedema [Unknown]
  - Aphasia [Not Recovered/Not Resolved]
  - Delirium [Unknown]
  - Hypertension [Unknown]
  - Incorrect route of drug administration [Unknown]
  - Coma [Recovered/Resolved]
  - Nervous system disorder [Unknown]
  - Cerebral infarction [Unknown]
  - Mechanical ventilation [Unknown]
  - Living in residential institution [Unknown]
